FAERS Safety Report 8715042 (Version 3)
Quarter: 2012Q4

REPORT INFORMATION
  Report Type: 
  Country: US (occurrence: US)
  Receive Date: 20120809
  Receipt Date: 20120919
  Transmission Date: 20130627
  Serious: Yes (Hospitalization)
  Sender: FDA-Public Use
  Company Number: US-ELI_LILLY_AND_COMPANY-US201208000710

PATIENT
  Age: 84 None
  Sex: Female

DRUGS (5)
  1. HUMULIN REGULAR [Suspect]
     Indication: TYPE 2 DIABETES MELLITUS
     Dosage: UNK, unknown
  2. HUMALOG LISPRO [Suspect]
     Indication: TYPE 2 DIABETES MELLITUS
     Dosage: 25 u, tid
     Dates: start: 201002
  3. HUMALOG LISPRO [Suspect]
     Dosage: 25 u, tid
  4. HUMALOG LISPRO [Suspect]
     Dosage: 80 u, prn
  5. LANTUS [Concomitant]
     Dosage: UNK, bid

REACTIONS (9)
  - Knee arthroplasty [Recovering/Resolving]
  - Weight decreased [Recovered/Resolved]
  - Blood glucose increased [Recovered/Resolved]
  - Drug ineffective [Recovered/Resolved]
  - Hypophagia [Unknown]
  - Weight increased [Unknown]
  - Drug ineffective [Recovered/Resolved]
  - Macular degeneration [Unknown]
  - Visual acuity reduced [Unknown]
